FAERS Safety Report 24448112 (Version 1)
Quarter: 2024Q4

REPORT INFORMATION
  Report Type: Report from Study
  Country: CN (occurrence: CN)
  Receive Date: 20241016
  Receipt Date: 20241016
  Transmission Date: 20250115
  Serious: Yes (Other)
  Sender: ABBVIE
  Company Number: CN-JNJFOC-20230329831

PATIENT

DRUGS (3)
  1. IMBRUVICA [Suspect]
     Active Substance: IBRUTINIB
     Indication: Central nervous system lymphoma
     Route: 048
  2. IMBRUVICA [Suspect]
     Active Substance: IBRUTINIB
     Indication: Central nervous system lymphoma
     Route: 048
  3. SULFAMETHOXAZOLE [Concomitant]
     Active Substance: SULFAMETHOXAZOLE
     Indication: Product used for unknown indication
     Route: 065

REACTIONS (23)
  - Pancytopenia [Unknown]
  - Neutrophil count decreased [Unknown]
  - Diarrhoea [Unknown]
  - Hyperglycaemia [Unknown]
  - Pneumonia [Unknown]
  - Anaemia [Unknown]
  - Lymphocyte count decreased [Unknown]
  - Nausea [Unknown]
  - Blood alkaline phosphatase increased [Unknown]
  - Aspartate aminotransferase increased [Unknown]
  - Hypokalaemia [Unknown]
  - Enterocolitis infectious [Unknown]
  - Headache [Unknown]
  - Gamma-glutamyltransferase increased [Unknown]
  - Sinus tachycardia [Unknown]
  - Hypocalcaemia [Unknown]
  - Platelet count decreased [Unknown]
  - Off label use [Unknown]
  - Hypoacusis [Unknown]
  - Hypoalbuminaemia [Unknown]
  - White blood cell count decreased [Unknown]
  - Haematoma [Unknown]
  - Abdominal pain [Unknown]
